FAERS Safety Report 17559849 (Version 2)
Quarter: 2020Q4

REPORT INFORMATION
  Report Type: Spontaneous
  Country: GB (occurrence: GB)
  Receive Date: 20200319
  Receipt Date: 20201014
  Transmission Date: 20210113
  Serious: Yes (Other)
  Sender: FDA-Public Use
  Company Number: GB-SA-2020SA066472

PATIENT

DRUGS (1)
  1. IRBESARTAN. [Suspect]
     Active Substance: IRBESARTAN
     Indication: CHRONIC KIDNEY DISEASE
     Dosage: 75 MG, QD
     Route: 048

REACTIONS (4)
  - Renal dysplasia [Unknown]
  - Single functional kidney [Unknown]
  - Paternal drugs affecting foetus [Unknown]
  - Foetal exposure during pregnancy [Unknown]
